FAERS Safety Report 7808207-8 (Version None)
Quarter: 2011Q4

REPORT INFORMATION
  Report Type: 
  Country: None (occurrence: None)
  Receive Date: 20111011
  Receipt Date: 20111006
  Transmission Date: 20120403
  Serious: Yes (Congenital Anomaly)
  Sender: FDA-Public Use
  Company Number: FR-GILEAD-2011-0041601

PATIENT

DRUGS (10)
  1. FERROUS SULFATE TAB [Concomitant]
     Indication: ANAEMIA
     Route: 064
  2. MEFLOQUINE HYDROCHLORIDE [Concomitant]
     Route: 064
     Dates: start: 20101206, end: 20110127
  3. UVEDOSE [Concomitant]
     Route: 064
  4. FERROUS SULFATE TAB [Concomitant]
     Route: 064
  5. AMOXCILLINE [Concomitant]
     Indication: DENTAL CARE
     Route: 064
  6. PROGRAF [Concomitant]
     Route: 064
  7. ASPEGIC 325 [Concomitant]
     Route: 064
  8. VIREAD [Suspect]
     Indication: HEPATITIS B
     Route: 064
  9. AMLODIPINE [Concomitant]
     Indication: HYPERTENSION
     Route: 064
  10. IMURAN [Concomitant]
     Route: 064

REACTIONS (2)
  - LABIA ENLARGED [None]
  - MATERNAL DRUGS AFFECTING FOETUS [None]
